FAERS Safety Report 16166883 (Version 1)
Quarter: 2019Q2

REPORT INFORMATION
  Report Type: Spontaneous
  Country: ES (occurrence: ES)
  Receive Date: 20190408
  Receipt Date: 20190408
  Transmission Date: 20190711
  Serious: Yes (Other)
  Sender: FDA-Public Use
  Company Number: ES-ROCHE-2292698

PATIENT
  Sex: Female

DRUGS (11)
  1. XGEVA [Concomitant]
     Active Substance: DENOSUMAB
     Indication: BREAST CANCER
     Route: 065
     Dates: start: 201609
  2. LETROZOLE. [Concomitant]
     Active Substance: LETROZOLE
     Route: 065
     Dates: start: 201802
  3. ABRAXANE [Concomitant]
     Active Substance: PACLITAXEL
     Route: 065
     Dates: start: 201809
  4. AVASTIN [Suspect]
     Active Substance: BEVACIZUMAB
     Indication: METASTASES TO LIVER
  5. XGEVA [Concomitant]
     Active Substance: DENOSUMAB
     Indication: METASTASES TO LIVER
  6. ERIBULINE [Concomitant]
     Active Substance: ERIBULIN
     Route: 065
     Dates: start: 201709
  7. AVASTIN [Suspect]
     Active Substance: BEVACIZUMAB
     Indication: BREAST CANCER
     Dosage: TAXOL + AVASTIN =} AVASTIN + XGEVA
     Route: 065
     Dates: start: 201702
  8. TAXOL [Concomitant]
     Active Substance: PACLITAXEL
     Indication: BREAST CANCER
     Route: 065
     Dates: start: 201702
  9. ZOLADEX [Concomitant]
     Active Substance: GOSERELIN ACETATE
  10. TAXOL [Concomitant]
     Active Substance: PACLITAXEL
     Indication: METASTASES TO LIVER
  11. MYOCET [Concomitant]
     Active Substance: DOXORUBICIN
     Route: 065
     Dates: start: 201901

REACTIONS (2)
  - Dizziness [Unknown]
  - Facial paralysis [Unknown]
